FAERS Safety Report 5605504-1 (Version None)
Quarter: 2008Q1

REPORT INFORMATION
  Report Type: 
  Country: None (occurrence: None)
  Receive Date: 20080124
  Receipt Date: 20080124
  Transmission Date: 20080703
  Serious: Yes (Hospitalization)
  Sender: FDA-Public Use
  Company Number: None

PATIENT
  Sex: Male
  Weight: 96.3 kg

DRUGS (16)
  1. XELODA [Suspect]
     Dosage: 4150 MG
  2. CAMPTOSAR [Suspect]
     Dosage: 0 MG
  3. ELOXATIN [Suspect]
     Dosage: 170 MG
  4. ALBUTEROL [Concomitant]
  5. ALLOPURINOL [Concomitant]
  6. ATENOLOL [Concomitant]
  7. COMPAZINE [Concomitant]
  8. DILAUDID [Concomitant]
  9. FLONASE [Concomitant]
  10. FLOVENT [Concomitant]
  11. KYTRIL [Concomitant]
  12. LEVAQUIN [Concomitant]
  13. LISINOPRIL [Concomitant]
  14. LORAZEPAN [Concomitant]
  15. OMEPRAZOLE [Concomitant]
  16. QUININE [Concomitant]

REACTIONS (7)
  - ABDOMINAL PAIN [None]
  - CLOSTRIDIUM DIFFICILE COLITIS [None]
  - HYPOTENSION [None]
  - NAUSEA [None]
  - PYREXIA [None]
  - SEPSIS [None]
  - VOMITING [None]
